FAERS Safety Report 21669602 (Version 1)
Quarter: 2022Q4

REPORT INFORMATION
  Report Type: Spontaneous
  Country: DE (occurrence: DE)
  Receive Date: 20221201
  Receipt Date: 20221201
  Transmission Date: 20230112
  Serious: Yes (Other)
  Sender: FDA-Public Use
  Company Number: DE-BoehringerIngelheim-2022-BI-204250

PATIENT

DRUGS (10)
  1. TIOTROPIUM [Suspect]
     Active Substance: TIOTROPIUM
     Indication: Chronic obstructive pulmonary disease
     Dosage: 1X2 PUFFS
  2. FENOTEROL\IPRATROPIUM BROMIDE [Suspect]
     Active Substance: FENOTEROL\IPRATROPIUM BROMIDE
     Indication: Product used for unknown indication
     Dosage: 2X2 PUFFS
  3. FENOTEROL\IPRATROPIUM BROMIDE [Suspect]
     Active Substance: FENOTEROL\IPRATROPIUM BROMIDE
     Dosage: 1-2 PUFFS PER ADMINISTRATION
  4. OLODATEROL [Suspect]
     Active Substance: OLODATEROL
     Indication: Product used for unknown indication
     Dosage: 1-2 PUFFS IF REQUIRED
  5. FENOTEROL [Concomitant]
     Active Substance: FENOTEROL
     Indication: Product used for unknown indication
     Dosage: 2X2 PUFFS
  6. INSULIN NOS [Concomitant]
     Active Substance: INSULIN NOS
     Indication: Type 2 diabetes mellitus
  7. ALBUTEROL [Concomitant]
     Active Substance: ALBUTEROL
     Indication: Product used for unknown indication
     Dosage: AT LEAST 10 X PER DAY
  8. MOXIFLOXACIN [Concomitant]
     Active Substance: MOXIFLOXACIN
     Indication: Product used for unknown indication
  9. Prednisolon 50 mg [Concomitant]
     Indication: Product used for unknown indication
  10. Prednisolon 50 mg [Concomitant]

REACTIONS (10)
  - Chronic obstructive pulmonary disease [Unknown]
  - Respiratory failure [Unknown]
  - Tracheal abscess [Unknown]
  - Condition aggravated [Unknown]
  - Product use issue [Unknown]
  - Emphysema [Unknown]
  - Bronchial disorder [Unknown]
  - Lung opacity [Unknown]
  - Pneumonia [Unknown]
  - Hypercapnia [Recovered/Resolved]
